FAERS Safety Report 8511973-X (Version None)
Quarter: 2012Q3

REPORT INFORMATION
  Report Type: 
  Country: None (occurrence: None)
  Receive Date: 20120716
  Receipt Date: 20120709
  Transmission Date: 20120928
  Serious: Yes (Other)
  Sender: FDA-Public Use
  Company Number: US-ASTRAZENECA-2012SE46654

PATIENT
  Age: 63 Year
  Sex: Male
  Weight: 100.5 kg

DRUGS (1)
  1. ZOLADEX [Suspect]
     Indication: PROSTATE CANCER
     Route: 058
     Dates: start: 20101001

REACTIONS (2)
  - NEOPLASM PROGRESSION [None]
  - HOT FLUSH [None]
